FAERS Safety Report 18140390 (Version 1)
Quarter: 2020Q3

REPORT INFORMATION
  Report Type: Spontaneous
  Country: CN (occurrence: CN)
  Receive Date: 20200812
  Receipt Date: 20200812
  Transmission Date: 20201104
  Serious: Yes (Hospitalization, Other)
  Sender: FDA-Public Use
  Company Number: CN-BAYER-2020-158472

PATIENT
  Age: 53 Year
  Sex: Female
  Weight: 45 kg

DRUGS (2)
  1. SINTILIMAB. [Suspect]
     Active Substance: SINTILIMAB
     Indication: COLON CANCER
     Dosage: 200 MG, Q4WK
     Dates: start: 20200518, end: 20200518
  2. STIVARGA [Suspect]
     Active Substance: REGORAFENIB
     Indication: COLON CANCER
     Dosage: 120 MG, QD
     Route: 048
     Dates: start: 20200518, end: 20200603

REACTIONS (8)
  - Hepatic function abnormal [Not Recovered/Not Resolved]
  - Off label use [None]
  - Autoimmune hepatitis [None]
  - Immunisation reaction [None]
  - Asthenia [None]
  - Rash [None]
  - Colon cancer [None]
  - Pyrexia [None]

NARRATIVE: CASE EVENT DATE: 2020
